FAERS Safety Report 7000016-5 (Version None)
Quarter: 2010Q3

REPORT INFORMATION
  Report Type: 
  Country: None (occurrence: None)
  Receive Date: 20100920
  Receipt Date: 20100302
  Transmission Date: 20110219
  Serious: Yes (Other)
  Sender: FDA-Public Use
  Company Number: US-ASTRAZENECA-2009UW20624

PATIENT
  Sex: Female

DRUGS (5)
  1. SEROQUEL [Suspect]
     Dosage: 300 TO 900 MG DAILY
     Route: 048
     Dates: start: 20081217
  2. NEXIUM [Concomitant]
     Dates: start: 20081217
  3. CARBATROL [Concomitant]
     Dates: start: 20080424
  4. PROPRANOLOL [Concomitant]
     Dates: start: 20080424
  5. FIORICET [Concomitant]
     Dates: start: 20080401

REACTIONS (3)
  - DIABETES MELLITUS [None]
  - KETOACIDOSIS [None]
  - PANCREATITIS [None]
